FAERS Safety Report 11494733 (Version 3)
Quarter: 2016Q2

REPORT INFORMATION
  Report Type: Report from Study
  Country: US (occurrence: US)
  Receive Date: 20150911
  Receipt Date: 20160407
  Transmission Date: 20160815
  Serious: No
  Sender: FDA-Public Use
  Company Number: PHEH2015US017536

PATIENT
  Sex: Female

DRUGS (7)
  1. GILENYA [Suspect]
     Active Substance: FINGOLIMOD HYDROCHLORIDE
     Indication: MULTIPLE SCLEROSIS
     Dosage: 0.5 MG, QD
     Route: 048
     Dates: start: 20150624
  2. LYRICA [Concomitant]
     Active Substance: PREGABALIN
     Indication: PRODUCT USED FOR UNKNOWN INDICATION
     Route: 065
  3. AMOXICILLIN. [Concomitant]
     Active Substance: AMOXICILLIN
     Indication: PRODUCT USED FOR UNKNOWN INDICATION
     Route: 065
  4. OMEPRAZOLE. [Concomitant]
     Active Substance: OMEPRAZOLE
     Indication: PRODUCT USED FOR UNKNOWN INDICATION
     Route: 065
  5. SIMVASTATIN. [Concomitant]
     Active Substance: SIMVASTATIN
     Indication: PRODUCT USED FOR UNKNOWN INDICATION
     Route: 065
  6. BACLOFEN. [Concomitant]
     Active Substance: BACLOFEN
     Indication: PRODUCT USED FOR UNKNOWN INDICATION
     Route: 065
  7. PERCOCET [Concomitant]
     Active Substance: ACETAMINOPHEN\OXYCODONE HYDROCHLORIDE
     Indication: PRODUCT USED FOR UNKNOWN INDICATION
     Route: 065

REACTIONS (12)
  - Grip strength decreased [Unknown]
  - Paraesthesia [Unknown]
  - Amblyopia [Unknown]
  - Fatigue [Unknown]
  - Headache [Unknown]
  - Arthritis [Unknown]
  - Stress [Unknown]
  - Weight increased [Unknown]
  - Abdominal pain [Unknown]
  - Ligament sprain [Unknown]
  - Eye irritation [Unknown]
  - Burning sensation [Unknown]
